FAERS Safety Report 17568571 (Version 2)
Quarter: 2020Q2

REPORT INFORMATION
  Report Type: Report from Study
  Country: BR (occurrence: BR)
  Receive Date: 20200320
  Receipt Date: 20200611
  Transmission Date: 20200713
  Serious: Yes (Hospitalization)
  Sender: FDA-Public Use
  Company Number: BR-TAKEDA-2020TUS014502

PATIENT
  Age: 49 Year
  Sex: Female

DRUGS (7)
  1. VEDOLIZUMAB [Suspect]
     Active Substance: VEDOLIZUMAB
     Indication: CROHN^S DISEASE
     Dosage: 300 MILLIGRAM
     Route: 042
     Dates: start: 20191215
  2. PREGABALIN. [Suspect]
     Active Substance: PREGABALIN
     Indication: ANTIDEPRESSANT THERAPY
     Dosage: UNK
     Route: 048
     Dates: end: 20200125
  3. BUSCOPAN [Concomitant]
     Active Substance: BUTYLSCOPOLAMINE BROMIDE
     Indication: PAIN
     Dosage: UNK
     Route: 048
  4. DIPYRONE [Concomitant]
     Active Substance: DIPYRONE
     Indication: PAIN
     Dosage: 1 GRAM
     Route: 048
  5. FRONTAL [Concomitant]
     Active Substance: ALPRAZOLAM
     Indication: INSOMNIA
     Dosage: 1 MILLIGRAM, QD
     Route: 048
  6. ZOLOFT [Concomitant]
     Active Substance: SERTRALINE HYDROCHLORIDE
     Indication: ANTIDEPRESSANT THERAPY
     Dosage: 50 MILLIGRAM, QD
     Route: 048
  7. PANTOPRAZOLE [Concomitant]
     Active Substance: PANTOPRAZOLE
     Indication: PROPHYLAXIS
     Dosage: UNK UNK, QD
     Route: 048

REACTIONS (16)
  - Asthenia [Recovered/Resolved]
  - Abdominal distension [Recovered/Resolved]
  - Sinusitis [Recovered/Resolved]
  - Nasopharyngitis [Recovered/Resolved]
  - Cough [Recovered/Resolved]
  - Dysphonia [Recovered/Resolved]
  - Fatigue [Recovered/Resolved]
  - Oropharyngeal pain [Recovered/Resolved]
  - Dyschezia [Recovered/Resolved]
  - Constipation [Recovered/Resolved]
  - Diarrhoea [Recovered/Resolved]
  - Abdominal pain [Recovered/Resolved]
  - Gastrointestinal stenosis [Recovered/Resolved]
  - Crohn^s disease [Recovered/Resolved]
  - Malaise [Recovered/Resolved]
  - Exposure to communicable disease [Unknown]

NARRATIVE: CASE EVENT DATE: 20200120
